FAERS Safety Report 4574426-X (Version None)
Quarter: 2005Q1

REPORT INFORMATION
  Report Type: 
  Country: None (occurrence: None)
  Receive Date: 20050204
  Receipt Date: 20050122
  Transmission Date: 20050727
  Serious: Yes (Hospitalization)
  Sender: FDA-Public Use
  Company Number: 2004101239

PATIENT
  Age: 43 Year
  Sex: Male
  Weight: 76.2043 kg

DRUGS (5)
  1. GEODON [Suspect]
     Indication: AFFECTIVE DISORDER
     Dosage: SEE IMAGE
     Route: 051
     Dates: start: 20041101
  2. GEODON [Suspect]
     Indication: BIPOLAR DISORDER
     Dosage: SEE IMAGE
     Route: 051
     Dates: start: 20041101
  3. GEODON [Suspect]
     Indication: AFFECTIVE DISORDER
     Dosage: SEE IMAGE
     Route: 051
     Dates: start: 20041101
  4. GEODON [Suspect]
     Indication: BIPOLAR DISORDER
     Dosage: SEE IMAGE
     Route: 051
     Dates: start: 20041101
  5. LITHIUM (LITHIUM) [Suspect]
     Indication: BIPOLAR DISORDER
     Dosage: ORAL
     Route: 048

REACTIONS (11)
  - BIPOLAR DISORDER [None]
  - BONE DISORDER [None]
  - CHEST PAIN [None]
  - DISEASE RECURRENCE [None]
  - DYSPEPSIA [None]
  - MUSCULOSKELETAL PAIN [None]
  - OESOPHAGEAL PAIN [None]
  - PALPITATIONS [None]
  - POLLAKIURIA [None]
  - STRESS [None]
  - TOOTH DISORDER [None]
